FAERS Safety Report 22101306 (Version 2)
Quarter: 2023Q2

REPORT INFORMATION
  Report Type: Other
  Country: IN (occurrence: None)
  Receive Date: 20230316
  Receipt Date: 20230406
  Transmission Date: 20230722
  Serious: Yes (Death, Other)
  Sender: FDA-Public Use
  Company Number: IN-ROCHE-3258474

PATIENT
  Age: 52 Year
  Sex: Male

DRUGS (1)
  1. TECENTRIQ [Suspect]
     Active Substance: ATEZOLIZUMAB
     Indication: Rectal cancer metastatic
     Route: 041
     Dates: start: 20230102

REACTIONS (4)
  - Off label use [Unknown]
  - T-lymphocyte count decreased [Unknown]
  - Autoimmune disorder [Unknown]
  - Death [Fatal]
